FAERS Safety Report 9753724 (Version 1)
Quarter: 2013Q4

REPORT INFORMATION
  Report Type: Spontaneous
  Country: JP (occurrence: JP)
  Receive Date: 20131213
  Receipt Date: 20131213
  Transmission Date: 20140711
  Serious: Yes (Other)
  Sender: FDA-Public Use
  Company Number: PHHY2013JP142675

PATIENT
  Age: 38 Year
  Sex: Female

DRUGS (2)
  1. PREDNISOLONE [Suspect]
     Indication: SYSTEMIC LUPUS ERYTHEMATOSUS
     Dosage: 60 MG, PER DAY
  2. PREDNISOLONE [Suspect]
     Dosage: 15 MG, PER DAY

REACTIONS (7)
  - Intervertebral disc injury [Recovering/Resolving]
  - Osteomyelitis [Recovering/Resolving]
  - Paraspinal abscess [Recovering/Resolving]
  - Arthritis infective [Recovering/Resolving]
  - Arthralgia [Recovering/Resolving]
  - Back pain [Recovering/Resolving]
  - Mycobacterium avium complex infection [Recovering/Resolving]
